FAERS Safety Report 16502756 (Version 2)
Quarter: 2019Q3

REPORT INFORMATION
  Report Type: Spontaneous
  Country: US (occurrence: US)
  Receive Date: 20190701
  Receipt Date: 20190717
  Transmission Date: 20191004
  Serious: No
  Sender: FDA-Public Use
  Company Number: US-ASTRAZENECA-2019SE89524

PATIENT
  Age: 23430 Day
  Sex: Female
  Weight: 126.6 kg

DRUGS (1)
  1. BYDUREON BCISE [Suspect]
     Active Substance: EXENATIDE
     Indication: TYPE 2 DIABETES MELLITUS
     Route: 058
     Dates: start: 20190616

REACTIONS (4)
  - Circumstance or information capable of leading to medication error [Recovered/Resolved]
  - Injection site indentation [Recovered/Resolved]
  - Intentional device misuse [Recovered/Resolved]
  - Device leakage [Unknown]

NARRATIVE: CASE EVENT DATE: 20190616
